FAERS Safety Report 4721933-2 (Version None)
Quarter: 2005Q3

REPORT INFORMATION
  Report Type: 
  Country: None (occurrence: None)
  Receive Date: 20050722
  Receipt Date: 20050711
  Transmission Date: 20060218
  Serious: Yes (Hospitalization)
  Sender: FDA-Public Use
  Company Number: JP-BRISTOL-MYERS SQUIBB COMPANY-13038799

PATIENT
  Age: 76 Year
  Sex: Female

DRUGS (8)
  1. MEVALOTIN [Suspect]
     Indication: HYPERLIPIDAEMIA
     Route: 048
     Dates: start: 20050513, end: 20050610
  2. EBRANTIL [Suspect]
     Indication: POLLAKIURIA
     Route: 048
     Dates: start: 20050411, end: 20050610
  3. BLADDERON [Suspect]
     Indication: POLLAKIURIA
     Route: 048
     Dates: start: 20050404, end: 20050610
  4. ZANTAC [Concomitant]
     Indication: GASTRITIS
     Dates: start: 20040916
  5. GASMOTIN [Concomitant]
     Indication: GASTRITIS
     Dates: start: 20040916
  6. STROCAIN [Concomitant]
     Indication: GASTRITIS
     Dates: start: 20040916
  7. AMLODIN [Concomitant]
     Indication: HYPERTENSION
     Dates: start: 20041112
  8. FLAVINE ADENINE DINUCLEOTIDE [Concomitant]
     Dates: start: 20040916

REACTIONS (2)
  - CHOLESTASIS [None]
  - LYMPHOCYTE STIMULATION TEST POSITIVE [None]
